FAERS Safety Report 18472195 (Version 2)
Quarter: 2025Q2

REPORT INFORMATION
  Report Type: Spontaneous
  Country: US (occurrence: US)
  Receive Date: 20201106
  Receipt Date: 20250628
  Transmission Date: 20250717
  Serious: Yes (Life-Threatening, Hospitalization, Other)
  Sender: AUROBINDO
  Company Number: US-MLMSERVICE-20201019-2535696-1

PATIENT
  Age: 30 Year
  Sex: Female

DRUGS (1)
  1. LAMOTRIGINE [Suspect]
     Active Substance: LAMOTRIGINE
     Indication: Bipolar disorder

REACTIONS (6)
  - Toxicity to various agents [Recovering/Resolving]
  - Intracranial pressure increased [Recovering/Resolving]
  - Brain oedema [Recovering/Resolving]
  - Cytotoxic oedema [Recovering/Resolving]
  - Encephalopathy [Recovering/Resolving]
  - Intentional overdose [Recovering/Resolving]
